FAERS Safety Report 5304175-1 (Version None)
Quarter: 2007Q2

REPORT INFORMATION
  Report Type: 
  Country: None (occurrence: None)
  Receive Date: 20070423
  Receipt Date: 20070410
  Transmission Date: 20071010
  Serious: Yes (Other)
  Sender: FDA-Public Use
  Company Number: PHEH2007US04774

PATIENT
  Age: 50 Year
  Sex: Female

DRUGS (1)
  1. ZELNORM [Suspect]
     Indication: IRRITABLE BOWEL SYNDROME
     Dosage: 6 MG, UNK
     Route: 048
     Dates: start: 20060501, end: 20061201

REACTIONS (4)
  - DYSPNOEA [None]
  - MUSCLE SPASMS [None]
  - VISUAL ACUITY REDUCED [None]
  - WEIGHT INCREASED [None]
